FAERS Safety Report 10075721 (Version 1)
Quarter: 2014Q2

REPORT INFORMATION
  Report Type: Spontaneous
  Country: SE (occurrence: SE)
  Receive Date: 20140414
  Receipt Date: 20140414
  Transmission Date: 20141212
  Serious: Yes (Other)
  Sender: FDA-Public Use
  Company Number: SE-ELI_LILLY_AND_COMPANY-SE201404000819

PATIENT
  Age: 26 Year
  Sex: Female

DRUGS (3)
  1. STRATTERA [Suspect]
     Indication: ATTENTION DEFICIT/HYPERACTIVITY DISORDER
     Dosage: 18 MG, QD
     Route: 065
     Dates: start: 20140210
  2. STRATTERA [Suspect]
     Dosage: 25 MG, QD
     Route: 065
  3. STRATTERA [Suspect]
     Dosage: 40 MG, QD
     Route: 065

REACTIONS (4)
  - Renal impairment [Not Recovered/Not Resolved]
  - Nausea [Recovered/Resolved]
  - Insomnia [Not Recovered/Not Resolved]
  - Fatigue [Not Recovered/Not Resolved]
